FAERS Safety Report 23365433 (Version 1)
Quarter: 2024Q1

REPORT INFORMATION
  Report Type: Spontaneous
  Country: US (occurrence: None)
  Receive Date: 20240103
  Receipt Date: 20240103
  Transmission Date: 20240410
  Serious: Yes (Other)
  Sender: FDA-Public Use
  Company Number: None

PATIENT
  Age: 77 Year
  Sex: Female
  Weight: 90 kg

DRUGS (16)
  1. BETADINE [Suspect]
     Active Substance: POVIDONE-IODINE
     Indication: Infection prophylaxis
     Route: 047
     Dates: start: 20231207
  2. EYLEA [Suspect]
     Active Substance: AFLIBERCEPT
  3. SPIRONOLACTONE [Concomitant]
     Active Substance: SPIRONOLACTONE
  4. ATORVASTATIN [Concomitant]
     Active Substance: ATORVASTATIN
  5. CIMETIDINE [Concomitant]
     Active Substance: CIMETIDINE
  6. LOSARTAN [Concomitant]
     Active Substance: LOSARTAN
  7. OMEPRAZOLE [Concomitant]
     Active Substance: OMEPRAZOLE
  8. AMLODIPINE [Concomitant]
     Active Substance: AMLODIPINE BESYLATE
  9. METOPROLOL SUCCINATE [Concomitant]
     Active Substance: METOPROLOL SUCCINATE
  10. SUCRALFATE [Concomitant]
     Active Substance: SUCRALFATE
  11. ESTROGENS [Concomitant]
     Active Substance: ESTROGENS
  12. ASPIRIN [Concomitant]
     Active Substance: ASPIRIN
  13. VITAMIN D3 [Concomitant]
     Active Substance: CHOLECALCIFEROL
  14. OCUVITE [Concomitant]
     Active Substance: VITAMINS
  15. VITAMINS [Concomitant]
     Active Substance: VITAMINS
  16. FLAXSEED [Concomitant]
     Active Substance: FLAX SEED

REACTIONS (2)
  - Eye pain [None]
  - Blood pressure increased [None]

NARRATIVE: CASE EVENT DATE: 20231207
